FAERS Safety Report 18147151 (Version 2)
Quarter: 2020Q3

REPORT INFORMATION
  Report Type: Report from Study
  Country: MX (occurrence: MX)
  Receive Date: 20200813
  Receipt Date: 20200821
  Transmission Date: 20201103
  Serious: Yes (Death, Hospitalization)
  Sender: FDA-Public Use
  Company Number: NVSC2020MX224117

PATIENT
  Age: 87 Year
  Sex: Male
  Weight: 80 kg

DRUGS (2)
  1. REVOLADE [Suspect]
     Active Substance: ELTROMBOPAG
     Dosage: 1 DF, QD
     Route: 048
     Dates: end: 20200717
  2. REVOLADE [Suspect]
     Active Substance: ELTROMBOPAG
     Indication: PLATELET COUNT DECREASED
     Dosage: 1 DF, QD
     Route: 048
     Dates: start: 202007

REACTIONS (5)
  - Respiratory arrest [Fatal]
  - COVID-19 [Fatal]
  - Cardiac arrest [Fatal]
  - Feeling abnormal [Not Recovered/Not Resolved]
  - Fatigue [Not Recovered/Not Resolved]

NARRATIVE: CASE EVENT DATE: 202007
